FAERS Safety Report 6259723-4 (Version None)
Quarter: 2009Q3

REPORT INFORMATION
  Report Type: 
  Country: None (occurrence: None)
  Receive Date: 20090706
  Receipt Date: 20090706
  Transmission Date: 20100115
  Serious: Yes (Other)
  Sender: FDA-Public Use
  Company Number: None

PATIENT
  Age: 46 Year
  Sex: Female
  Weight: 72.5755 kg

DRUGS (1)
  1. BENICAR [Suspect]
     Indication: HYPERTENSION
     Dosage: ONE PILL ONE TIME A DAY PO
     Route: 048
     Dates: start: 20090601, end: 20090612

REACTIONS (2)
  - ABDOMINAL DISTENSION [None]
  - ASTHMA [None]
